FAERS Safety Report 13829361 (Version 3)
Quarter: 2018Q3

REPORT INFORMATION
  Report Type: Spontaneous
  Country: CA (occurrence: CA)
  Receive Date: 20170803
  Receipt Date: 20180816
  Transmission Date: 20181010
  Serious: Yes (Other)
  Sender: FDA-Public Use
  Company Number: CA-PFIZER INC-2017332363

PATIENT
  Age: 83 Year
  Sex: Male

DRUGS (21)
  1. ESBRIET [Interacting]
     Active Substance: PIRFENIDONE
     Indication: IDIOPATHIC PULMONARY FIBROSIS
     Dosage: 267 MG, TID
     Route: 048
     Dates: start: 20170127
  2. NUTRIENTS NOS [Concomitant]
     Active Substance: UNSPECIFIED INGREDIENT
     Route: 065
  3. ESBRIET [Interacting]
     Active Substance: PIRFENIDONE
     Dosage: 801 MG, TID
     Route: 048
     Dates: start: 2017, end: 201705
  4. NYSTATIN. [Concomitant]
     Active Substance: NYSTATIN
     Dosage: UNK
     Route: 065
  5. VENTOLIN [Concomitant]
     Active Substance: ALBUTEROL SULFATE
     Dosage: UNK
     Route: 065
  6. ROSUVASTATIN CALCIUM. [Concomitant]
     Active Substance: ROSUVASTATIN CALCIUM
     Dosage: UNK
     Route: 065
  7. DESONIDE. [Concomitant]
     Active Substance: DESONIDE
     Dosage: UNK
     Route: 065
  8. LAMISIL [Concomitant]
     Active Substance: TERBINAFINE HYDROCHLORIDE
     Dosage: UNK
     Route: 065
  9. TYLENOL [Concomitant]
     Active Substance: ACETAMINOPHEN
     Dosage: UNK
     Route: 065
  10. TECTA [Suspect]
     Active Substance: PANTOPRAZOLE MAGNESIUM
     Dosage: UNK
     Route: 065
  11. BISOPROLOL [Concomitant]
     Active Substance: BISOPROLOL
     Dosage: UNK
     Route: 065
  12. CELEBREX [Concomitant]
     Active Substance: CELECOXIB
     Dosage: UNK
     Route: 065
  13. ESBRIET [Interacting]
     Active Substance: PIRFENIDONE
     Dosage: 534 MG, TID
     Route: 048
     Dates: start: 20170203
  14. ESBRIET [Interacting]
     Active Substance: PIRFENIDONE
     Dosage: 1602 MG, QD
     Route: 048
  15. ACETYLSALICYLIC ACID [Concomitant]
     Active Substance: ASPIRIN
     Dosage: UNK
     Route: 065
  16. ADVAIR HFA [Concomitant]
     Active Substance: FLUTICASONE PROPIONATE\SALMETEROL XINAFOATE
     Dosage: UNK
     Route: 065
  17. DIOVAN [Concomitant]
     Active Substance: VALSARTAN
     Dosage: UNK
     Route: 065
  18. ESBRIET [Interacting]
     Active Substance: PIRFENIDONE
     Dosage: 801 MG, TID
     Route: 048
  19. ESBRIET [Interacting]
     Active Substance: PIRFENIDONE
     Dosage: 801 MG, QD
     Route: 048
     Dates: start: 20170417
  20. DERMOVATE [Concomitant]
     Active Substance: CLOBETASOL
     Dosage: UNK
     Route: 065
  21. HYCODAN [Concomitant]
     Active Substance: HOMATROPINE METHYLBROMIDE\HYDROCODONE BITARTRATE
     Dosage: UNK
     Route: 065

REACTIONS (14)
  - Thrombocytopenia [Unknown]
  - Musculoskeletal disorder [Unknown]
  - Nausea [Unknown]
  - Dyspepsia [Not Recovered/Not Resolved]
  - Abdominal distension [Unknown]
  - Decreased appetite [Not Recovered/Not Resolved]
  - Dyspnoea [Not Recovered/Not Resolved]
  - Vomiting [Unknown]
  - Fatigue [Not Recovered/Not Resolved]
  - Drug interaction [Unknown]
  - Gastrooesophageal reflux disease [Not Recovered/Not Resolved]
  - Abdominal pain upper [Not Recovered/Not Resolved]
  - Rash [Recovering/Resolving]
  - Cough [Not Recovered/Not Resolved]

NARRATIVE: CASE EVENT DATE: 201702
